FAERS Safety Report 20145333 (Version 3)
Quarter: 2024Q2

REPORT INFORMATION
  Report Type: Spontaneous
  Country: CA (occurrence: CA)
  Receive Date: 20211203
  Receipt Date: 20240423
  Transmission Date: 20240716
  Serious: Yes (Other)
  Sender: FDA-Public Use
  Company Number: CA-PFIZER INC-2021008100

PATIENT
  Age: 43 Year
  Sex: Female

DRUGS (6)
  1. METHOTREXATE SODIUM [Suspect]
     Active Substance: METHOTREXATE SODIUM
     Indication: Immunosuppressant drug therapy
     Dosage: 25 MG, WEEKLY
     Route: 058
  2. METHOTREXATE SODIUM [Suspect]
     Active Substance: METHOTREXATE SODIUM
     Indication: Psoriatic arthropathy
  3. INFLECTRA [Concomitant]
     Active Substance: INFLIXIMAB-DYYB
     Indication: Psoriatic arthropathy
     Dosage: 400 MG INDUCTION WEEK 0
     Route: 042
     Dates: start: 20210105
  4. INFLECTRA [Concomitant]
     Active Substance: INFLIXIMAB-DYYB
     Dosage: 400 MG, 6 WEEKS
     Route: 042
     Dates: start: 20210105
  5. INFLECTRA [Concomitant]
     Active Substance: INFLIXIMAB-DYYB
     Dosage: 400 MG, 6 WEEKS
     Route: 042
     Dates: start: 20211125
  6. INFLECTRA [Concomitant]
     Active Substance: INFLIXIMAB-DYYB
     Dosage: 400 MG, 6 WEEKS
     Route: 042
     Dates: start: 20240418

REACTIONS (6)
  - Ankle fracture [Unknown]
  - Fracture pain [Not Recovered/Not Resolved]
  - Condition aggravated [Unknown]
  - Diarrhoea [Unknown]
  - Rhinalgia [Unknown]
  - Off label use [Unknown]
